FAERS Safety Report 4960420-3 (Version None)
Quarter: 2006Q1

REPORT INFORMATION
  Report Type: 
  Country: None (occurrence: None)
  Receive Date: 20060328
  Receipt Date: 20060313
  Transmission Date: 20060701
  Serious: Yes (Other)
  Sender: FDA-Public Use
  Company Number: 2006039048

PATIENT
  Age: 59 Year
  Sex: Female

DRUGS (3)
  1. MIGLITOL TABLET (MIGLITOL) [Suspect]
     Indication: DIABETES MELLITUS
     Dosage: 150 MG (50 MG, 3 IN 1 D)
     Dates: start: 20060308, end: 20060301
  2. NORVASC [Concomitant]
  3. NORFLOXACIN [Concomitant]

REACTIONS (1)
  - ILEUS [None]
